FAERS Safety Report 11596428 (Version 1)
Quarter: 2015Q4

REPORT INFORMATION
  Report Type: Report from Study
  Country: AU (occurrence: AU)
  Receive Date: 20151006
  Receipt Date: 20151006
  Transmission Date: 20160304
  Serious: Yes (Hospitalization, Congenital Anomaly)
  Sender: FDA-Public Use
  Company Number: AU-JNJFOC-20150927568

PATIENT
  Age: 0 Day
  Sex: Female
  Weight: 3.12 kg

DRUGS (4)
  1. RISPERIDONE. [Suspect]
     Active Substance: RISPERIDONE
     Indication: PSYCHOTIC DISORDER
     Dosage: IT WAS COMMENCED PRE-PREGNANCY AND CEASED AT 36/40 WEEKS OF GESTATION.
     Route: 064
  2. OMEGA 3 [Concomitant]
     Active Substance: OMEGA-3 FATTY ACIDS
     Indication: NUTRITIONAL SUPPLEMENTATION
     Dosage: DOSE WAS 1 TABLET AND STARTED AT FIRST TRIMESTER TILL THE BIRTH OF THE CHILD.
     Route: 064
  3. QUETIAPINE [Concomitant]
     Active Substance: QUETIAPINE
     Indication: PSYCHOTIC DISORDER
     Dosage: IT WAS STARTED AT 36/40 WEEKS AND WAS ONGOING IN MOTHER.
     Route: 064
  4. BLACKMORES PREGNANCY + BREAST-FEEDING [Concomitant]
     Active Substance: FISH OIL\MINERALS\VITAMINS
     Indication: HYPOVITAMINOSIS
     Dosage: DOSE WAS 2 TABLETS AND STARTED AT FIRST TRIMESTER TILL THE BIRTH OF THE CHILD.
     Route: 064

REACTIONS (3)
  - Talipes [Recovered/Resolved with Sequelae]
  - Renal tubular disorder [Recovered/Resolved]
  - Foetal exposure during pregnancy [Unknown]

NARRATIVE: CASE EVENT DATE: 20080907
